FAERS Safety Report 8867849 (Version 1)
Quarter: 2012Q4

REPORT INFORMATION
  Report Type: 
  Country: US (occurrence: US)
  Receive Date: 20121026
  Receipt Date: 20121026
  Transmission Date: 20130627
  Serious: No
  Sender: FDA-Public Use
  Company Number: US-AMGEN-USASP2012041008

PATIENT
  Sex: Female
  Weight: 81.63 kg

DRUGS (5)
  1. ENBREL [Suspect]
     Indication: PRODUCT USED FOR UNKNOWN INDICATION
     Dosage: 50 mg, 2 times/wk
     Route: 058
     Dates: end: 20120618
  2. NORVASC [Concomitant]
     Dosage: 10 mg, UNK
  3. HUMIRA [Concomitant]
     Dosage: 40mg/0.8
  4. PRAVASTATIN [Concomitant]
     Dosage: 10 mg, UNK
  5. METOPROLOL [Concomitant]
     Dosage: 200 mg, UNK

REACTIONS (2)
  - Condition aggravated [Unknown]
  - Drug ineffective [Unknown]
